FAERS Safety Report 10276391 (Version 1)
Quarter: 2014Q3

REPORT INFORMATION
  Report Type: Spontaneous
  Country: US (occurrence: None)
  Receive Date: 20140701
  Receipt Date: 20140701
  Transmission Date: 20150326
  Serious: Yes (Other)
  Sender: FDA-Public Use
  Company Number: None

PATIENT
  Age: 7 Year
  Sex: Female

DRUGS (2)
  1. KEPPRA [Suspect]
     Active Substance: LEVETIRACETAM
     Indication: EPILEPSY
     Route: 048
     Dates: start: 2006
  2. KEPPRA [Suspect]
     Active Substance: LEVETIRACETAM
     Indication: AUTISM
     Route: 048
     Dates: start: 2006

REACTIONS (1)
  - Mood altered [None]

NARRATIVE: CASE EVENT DATE: 200604
